FAERS Safety Report 18013736 (Version 1)
Quarter: 2020Q3

REPORT INFORMATION
  Report Type: Report from Study
  Country: US (occurrence: US)
  Receive Date: 20200713
  Receipt Date: 20200713
  Transmission Date: 20201103
  Serious: Yes (Hospitalization)
  Sender: FDA-Public Use
  Company Number: US-JNJFOC-20200424614

PATIENT
  Age: 55 Year
  Sex: Female
  Weight: 86.26 kg

DRUGS (2)
  1. SPRAVATO [Suspect]
     Active Substance: ESKETAMINE
     Indication: MAJOR DEPRESSION
     Dates: start: 20191216, end: 20191216
  2. SPRAVATO [Suspect]
     Active Substance: ESKETAMINE
     Indication: BIPOLAR DISORDER

REACTIONS (5)
  - Hypoaesthesia oral [Unknown]
  - Blood pressure increased [Recovered/Resolved]
  - Sedation [Unknown]
  - Fear [Unknown]
  - Feeling abnormal [Unknown]

NARRATIVE: CASE EVENT DATE: 20191216
